FAERS Safety Report 16442342 (Version 1)
Quarter: 2019Q2

REPORT INFORMATION
  Report Type: Report from Study
  Country: None (occurrence: US)
  Receive Date: 20190617
  Receipt Date: 20190617
  Transmission Date: 20190711
  Serious: No
  Sender: FDA-Public Use
  Company Number: US-US WORLDMEDS, LLC-USW201904-000692

PATIENT
  Age: 68 Year
  Sex: Male

DRUGS (9)
  1. RYTARY [Concomitant]
     Active Substance: CARBIDOPA\LEVODOPA
  2. SIMVASTATIN. [Concomitant]
     Active Substance: SIMVASTATIN
  3. ROPINIROLE. [Concomitant]
     Active Substance: ROPINIROLE
  4. JANUMET ER [Concomitant]
  5. REQUIP [Concomitant]
     Active Substance: ROPINIROLE HYDROCHLORIDE
  6. INBRIJA [Concomitant]
     Active Substance: LEVODOPA
  7. APOKYN [Suspect]
     Active Substance: APOMORPHINE HYDROCHLORIDE
     Indication: PARKINSON^S DISEASE
     Route: 058
     Dates: start: 20180822
  8. SINEMET [Concomitant]
     Active Substance: CARBIDOPA\LEVODOPA
  9. ADVAIR HFA [Concomitant]
     Active Substance: FLUTICASONE PROPIONATE\SALMETEROL XINAFOATE

REACTIONS (1)
  - Injection site pain [Recovered/Resolved]

NARRATIVE: CASE EVENT DATE: 201903
